FAERS Safety Report 22015050 (Version 2)
Quarter: 2023Q1

REPORT INFORMATION
  Report Type: Spontaneous
  Country: US (occurrence: US)
  Receive Date: 20230221
  Receipt Date: 20230322
  Transmission Date: 20230418
  Serious: No
  Sender: FDA-Public Use
  Company Number: US-SA-SAC20230217000197

PATIENT
  Age: 24 Year
  Sex: Male
  Weight: 89 kg

DRUGS (1)
  1. DUPIXENT [Suspect]
     Active Substance: DUPILUMAB
     Indication: Nasal polyps
     Dosage: 300 MG, QOW
     Route: 058
     Dates: start: 202212

REACTIONS (5)
  - Injection site swelling [Unknown]
  - Injection site erythema [Unknown]
  - Obstruction [Recovered/Resolved]
  - Erythema [Recovered/Resolved]
  - Oedema [Recovered/Resolved]
